FAERS Safety Report 8329024-9 (Version None)
Quarter: 2012Q2

REPORT INFORMATION
  Report Type: 
  Country: None (occurrence: None)
  Receive Date: 20120502
  Receipt Date: 20120424
  Transmission Date: 20120825
  Serious: Yes (Other)
  Sender: FDA-Public Use
  Company Number: PHHY2012BR035872

PATIENT
  Age: 56 Year
  Sex: Male

DRUGS (2)
  1. DIOVAN [Suspect]
     Dosage: 160 MG, ONE TABLET A DAY
  2. RASILEZ [Suspect]
     Dosage: 150 MG, ONE TABLET A DAY

REACTIONS (7)
  - DENGUE FEVER [None]
  - DIZZINESS [None]
  - PLATELET COUNT DECREASED [None]
  - SENSATION OF HEAVINESS [None]
  - HYPOTENSION [None]
  - PYREXIA [None]
  - MALAISE [None]
